FAERS Safety Report 4805514-8 (Version None)
Quarter: 2005Q4

REPORT INFORMATION
  Report Type: 
  Country: None (occurrence: None)
  Receive Date: 20051018
  Receipt Date: 20051006
  Transmission Date: 20060501
  Serious: Yes (Death)
  Sender: FDA-Public Use
  Company Number: S05-USA-04561-01

PATIENT
  Age: 61 Year
  Sex: Male

DRUGS (1)
  1. LEXAPRO [Suspect]

REACTIONS (5)
  - AGGRESSION [None]
  - COMPLETED SUICIDE [None]
  - GUN SHOT WOUND [None]
  - HOMICIDAL IDEATION [None]
  - PHYSICAL ASSAULT [None]
